FAERS Safety Report 20082566 (Version 1)
Quarter: 2021Q4

REPORT INFORMATION
  Report Type: Spontaneous
  Country: GB (occurrence: GB)
  Receive Date: 20211117
  Receipt Date: 20211117
  Transmission Date: 20220304
  Serious: Yes (Life-Threatening)
  Sender: FDA-Public Use
  Company Number: GB-MDI-2021000039

PATIENT
  Age: 31 Year
  Sex: Female

DRUGS (5)
  1. MORPHINE [Interacting]
     Active Substance: MORPHINE
     Indication: Analgesic therapy
     Dosage: 10MG INTRAMUSCULAR;
     Route: 030
     Dates: start: 20210817, end: 20210817
  2. METHOXYFLURANE [Interacting]
     Active Substance: METHOXYFLURANE
     Indication: Procedural pain
     Dosage: DOSE: ONCE;INGREDIENT (METHOXYFLURANE): 3ML;
     Route: 065
     Dates: start: 20210817, end: 20210817
  3. METOCLOPRAMIDE [Concomitant]
     Active Substance: METOCLOPRAMIDE
     Indication: Antiemetic supportive care
     Dosage: 10MG
     Route: 030
     Dates: start: 20210817
  4. MORPHINE SULFATE [Concomitant]
     Active Substance: MORPHINE SULFATE
     Indication: Analgesic therapy
     Dosage: 10MG
     Route: 048
     Dates: start: 20210817
  5. ACETAMINOPHEN [Concomitant]
     Active Substance: ACETAMINOPHEN
     Indication: Analgesic therapy
     Dosage: DOSE: 18;
     Route: 048
     Dates: start: 20210817

REACTIONS (2)
  - Apnoeic attack [Recovered/Resolved]
  - Labelled drug-drug interaction issue [Recovered/Resolved]

NARRATIVE: CASE EVENT DATE: 20210817
